FAERS Safety Report 5246000-3 (Version None)
Quarter: 2007Q1

REPORT INFORMATION
  Report Type: 
  Country: None (occurrence: None)
  Receive Date: 20070220
  Receipt Date: 20070202
  Transmission Date: 20070707
  Serious: Yes (Life-Threatening, Other)
  Sender: FDA-Public Use
  Company Number: 2006RR-04519

PATIENT
  Age: 30 Year
  Sex: Female

DRUGS (4)
  1. MAXOLON [Suspect]
     Dosage: 10 MG, INTRAVENOUS
     Route: 042
     Dates: start: 20060501
  2. ZANTAC [Suspect]
     Dosage: 50 MG, QD, INTRAVENOUS
     Route: 042
     Dates: start: 20060501
  3. ZANTAC [Suspect]
     Indication: PREMEDICATION
     Dosage: 50 MG, QDM, INTRAVENOUS
     Route: 042
     Dates: start: 20060515, end: 20060515
  4. METOCLOPRAMIDE [Concomitant]

REACTIONS (1)
  - ANAPHYLACTIC REACTION [None]
